FAERS Safety Report 5636414-1 (Version None)
Quarter: 2008Q1

REPORT INFORMATION
  Report Type: 
  Country: None (occurrence: None)
  Receive Date: 20080225
  Receipt Date: 20080123
  Transmission Date: 20080703
  Serious: No
  Sender: FDA-Public Use
  Company Number: A0699774A

PATIENT
  Age: 46 Year
  Sex: Female

DRUGS (2)
  1. VERAMYST [Suspect]
     Indication: SINUS CONGESTION
     Dosage: 110MCG UNKNOWN
     Route: 045
     Dates: start: 20071101
  2. BIAXIN [Concomitant]

REACTIONS (2)
  - DRUG INEFFECTIVE [None]
  - PHARMACEUTICAL PRODUCT COMPLAINT [None]
